FAERS Safety Report 23268274 (Version 1)
Quarter: 2023Q4

REPORT INFORMATION
  Report Type: Spontaneous
  Country: US (occurrence: US)
  Receive Date: 20231206
  Receipt Date: 20231206
  Transmission Date: 20240110
  Serious: Yes (Life-Threatening, Other)
  Sender: FDA-Public Use
  Company Number: US-PFIZER INC-PV202300192684

PATIENT
  Age: 69 Year
  Sex: Female

DRUGS (4)
  1. DAPTOMYCIN [Suspect]
     Active Substance: DAPTOMYCIN
     Indication: Infection
     Dosage: 4 MG/KG, ALTERNATE DAY (EVERY 48 H)
  2. DAPTOMYCIN [Suspect]
     Active Substance: DAPTOMYCIN
     Dosage: 300 MG ON DAY 5
  3. DAPTOMYCIN [Suspect]
     Active Substance: DAPTOMYCIN
     Dosage: 300 MG ON DAY 7
  4. FLUCONAZOLE [Concomitant]
     Active Substance: FLUCONAZOLE
     Indication: Infection
     Dosage: UNK
     Route: 042

REACTIONS (1)
  - Hyperkalaemia [Recovering/Resolving]
